FAERS Safety Report 24537180 (Version 2)
Quarter: 2025Q2

REPORT INFORMATION
  Report Type: Spontaneous
  Country: US (occurrence: US)
  Receive Date: 20241022
  Receipt Date: 20250423
  Transmission Date: 20250716
  Serious: No
  Sender: SANOFI AVENTIS
  Company Number: US-SA-2024SA301792

PATIENT
  Age: 10 Year
  Sex: Female

DRUGS (7)
  1. DUPIXENT [Suspect]
     Active Substance: DUPILUMAB
     Indication: Eosinophilic oesophagitis
     Dosage: 300 MG, QOW
     Route: 058
     Dates: start: 20240926
  2. NAPROXEN [Concomitant]
     Active Substance: NAPROXEN
  3. ALBUTEROL [Concomitant]
     Active Substance: ALBUTEROL
  4. FAMOTIDINE [Concomitant]
     Active Substance: FAMOTIDINE
  5. CLONIDINE [Concomitant]
     Active Substance: CLONIDINE
  6. ARIPIPRAZOLE [Concomitant]
     Active Substance: ARIPIPRAZOLE
  7. RIZATRIPTAN [Concomitant]
     Active Substance: RIZATRIPTAN

REACTIONS (6)
  - Injection site urticaria [Recovered/Resolved]
  - Decreased appetite [Unknown]
  - Injection site rash [Recovered/Resolved]
  - Injection site pruritus [Unknown]
  - Injection site swelling [Recovered/Resolved]
  - Arthralgia [Not Recovered/Not Resolved]

NARRATIVE: CASE EVENT DATE: 20240101
